FAERS Safety Report 8595781 (Version 3)
Quarter: 2013Q3

REPORT INFORMATION
  Report Type: Spontaneous
  Country: US (occurrence: US)
  Receive Date: 20120605
  Receipt Date: 20130723
  Transmission Date: 20140515
  Serious: Yes (Hospitalization)
  Sender: FDA-Public Use
  Company Number: US-ASTRAZENECA-2012SE35606

PATIENT
  Age: 670 Month
  Sex: Female
  Weight: 59 kg

DRUGS (7)
  1. NEXIUM [Suspect]
     Indication: GASTROOESOPHAGEAL REFLUX DISEASE
     Route: 048
  2. PREVACID [Concomitant]
     Indication: GASTROOESOPHAGEAL REFLUX DISEASE
  3. OXYCONTIN [Concomitant]
     Indication: PAIN
  4. POTASSIUM [Concomitant]
     Indication: BONE DISORDER
  5. DIAZEPAM [Concomitant]
     Indication: ANXIETY
  6. LIBRAX [Concomitant]
  7. TRAMADOL [Concomitant]
     Indication: PAIN

REACTIONS (11)
  - Pyrexia [Unknown]
  - Skin irritation [Unknown]
  - Osteoporosis [Unknown]
  - Bone pain [Unknown]
  - Bone disorder [Unknown]
  - Fracture [Unknown]
  - Multiple fractures [Unknown]
  - Fall [Unknown]
  - Upper limb fracture [Unknown]
  - Wrist fracture [Recovered/Resolved]
  - Depression [Unknown]
